FAERS Safety Report 9261729 (Version 2)
Quarter: 2013Q2

REPORT INFORMATION
  Report Type: Report from Study
  Country: DE (occurrence: DE)
  Receive Date: 20130429
  Receipt Date: 20130626
  Transmission Date: 20140414
  Serious: Yes (Hospitalization)
  Sender: FDA-Public Use
  Company Number: DE-BRISTOL-MYERS SQUIBB COMPANY-18809533

PATIENT
  Age: 52 Year
  Sex: Female
  Weight: 75 kg

DRUGS (3)
  1. ORENCIA [Suspect]
     Indication: RHEUMATOID ARTHRITIS
     Dosage: THERAPY DATES:06NOV2012,04APR2013-ONG(125MG,SC)
     Route: 042
     Dates: end: 20121106
  2. METHOTREXATE [Suspect]
     Indication: RHEUMATOID ARTHRITIS
     Dosage: THERAPY DTS:25NOV2004-12DEC2012,07FEB2013-ONG
     Route: 051
     Dates: start: 20041125
  3. PREDNISOLONE [Suspect]
     Indication: RHEUMATOID ARTHRITIS
     Route: 048
     Dates: start: 20041125

REACTIONS (3)
  - Abscess limb [Recovered/Resolved]
  - Joint destruction [Recovered/Resolved]
  - Osteomyelitis [Recovered/Resolved]
